FAERS Safety Report 10173528 (Version 1)
Quarter: 2014Q2

REPORT INFORMATION
  Report Type: Spontaneous
  Country: US (occurrence: None)
  Receive Date: 20140416
  Receipt Date: 20140416
  Transmission Date: 20141212
  Serious: Yes (Hospitalization)
  Sender: FDA-Public Use
  Company Number: 163-POMAL-14013486

PATIENT
  Age: 73 Year
  Sex: Male

DRUGS (4)
  1. POMALYST [Suspect]
     Indication: PLASMA CELL MYELOMA
     Dosage: 21 IN 21D?TEMPORARILY INTERRUPTED
     Route: 048
     Dates: start: 20140102
  2. DEXAMETHASONE (DEXAMETHASONE) [Concomitant]
  3. LORTAB (VICODIN) [Concomitant]
  4. TERAZOSIN HCL (TERAZOSIN HYDROCHLORIDE) [Concomitant]

REACTIONS (1)
  - Pneumonia [None]
